FAERS Safety Report 21926333 (Version 1)
Quarter: 2023Q1

REPORT INFORMATION
  Report Type: Spontaneous
  Country: US (occurrence: US)
  Receive Date: 20230130
  Receipt Date: 20230130
  Transmission Date: 20230418
  Serious: Yes (Life-Threatening, Hospitalization, Other)
  Sender: FDA-Public Use
  Company Number: US-PFIZER INC-PV202300015656

PATIENT
  Age: 44 Year
  Sex: Male

DRUGS (4)
  1. VERAPAMIL HCL [Suspect]
     Active Substance: VERAPAMIL HYDROCHLORIDE
     Indication: Supraventricular tachycardia
     Dosage: 40 MG, 3X/DAY
  2. VERAPAMIL HCL [Suspect]
     Active Substance: VERAPAMIL HYDROCHLORIDE
     Indication: Atrial fibrillation
  3. NORVERAPAMIL [Suspect]
     Active Substance: NORVERAPAMIL
     Indication: Atrial fibrillation
     Dosage: UNK
  4. NORVERAPAMIL [Suspect]
     Active Substance: NORVERAPAMIL
     Indication: Supraventricular tachycardia

REACTIONS (7)
  - Toxicity to various agents [Unknown]
  - Hypotension [Unknown]
  - Bradycardia [Unknown]
  - Hyperkalaemia [Unknown]
  - Metabolic acidosis [Unknown]
  - Hepatic function abnormal [Unknown]
  - Cardiac failure congestive [Unknown]
